FAERS Safety Report 5082498-1 (Version None)
Quarter: 2006Q3

REPORT INFORMATION
  Report Type: 
  Country: None (occurrence: None)
  Receive Date: 20060814
  Receipt Date: 20060731
  Transmission Date: 20061208
  Serious: Yes (Hospitalization, Other)
  Sender: FDA-Public Use
  Company Number: 2006092975

PATIENT
  Age: 26 Year
  Sex: Female
  Weight: 51.2565 kg

DRUGS (9)
  1. SILDENAFIL CITRATE [Suspect]
     Indication: PULMONARY HYPERTENSION
     Dosage: 240 MG (80 MG, 3 IN 1 D), ORAL
     Route: 048
     Dates: start: 20040407, end: 20060627
  2. LANOXIN [Concomitant]
  3. HYDROCHLOROTHIAZIDE [Concomitant]
  4. OXYGEN [Concomitant]
  5. ACETAMINOPHEN [Concomitant]
  6. LOPERAMIDE HYDROCHLORIDE [Concomitant]
  7. PROTONIX [Concomitant]
  8. FERROUS SULFATE TAB [Concomitant]
  9. WARFARIN SODIUM [Concomitant]

REACTIONS (7)
  - ABDOMINAL DISTENSION [None]
  - ABDOMINAL TENDERNESS [None]
  - CONDITION AGGRAVATED [None]
  - DRUG INEFFECTIVE [None]
  - GASTROINTESTINAL HAEMORRHAGE [None]
  - GENERAL PHYSICAL HEALTH DETERIORATION [None]
  - RECTAL HAEMORRHAGE [None]
